FAERS Safety Report 5513997-3 (Version None)
Quarter: 2007Q4

REPORT INFORMATION
  Report Type: 
  Country: None (occurrence: None)
  Receive Date: 20071107
  Receipt Date: 20061010
  Transmission Date: 20080405
  Serious: Yes (Hospitalization)
  Sender: FDA-Public Use
  Company Number: 2006RL000361

PATIENT
  Age: 78 Year
  Sex: Female
  Weight: 68.0396 kg

DRUGS (1)
  1. RYTHMOL SR [Suspect]
     Indication: DRUG USE FOR UNKNOWN INDICATION
     Dosage: 225 MG;BID;PO
     Route: 048

REACTIONS (1)
  - RASH MORBILLIFORM [None]
